FAERS Safety Report 8237497-5 (Version None)
Quarter: 2012Q1

REPORT INFORMATION
  Report Type: 
  Country: None (occurrence: None)
  Receive Date: 20120327
  Receipt Date: 20120326
  Transmission Date: 20120608
  Serious: Yes (Death)
  Sender: FDA-Public Use
  Company Number: PHEH2012US003175

PATIENT
  Sex: Female

DRUGS (13)
  1. ADVAIR DISKUS 100/50 [Concomitant]
     Dosage: 1 PUFF, BID
  2. PREDNISONE TAB [Concomitant]
     Dosage: 2.5 MG, UNK
     Route: 048
  3. TRIAMCINOLONE ACETONIDE [Concomitant]
     Route: 045
  4. NASONEX [Concomitant]
     Dosage: 2 SPRAY EACH NOSTRIL, BID
     Route: 045
  5. LASIX [Concomitant]
     Dosage: 1 DF, UNK
  6. FEXOFENADINE HYDROCHLORIDE [Concomitant]
     Dosage: 1 DF, QD
     Route: 048
  7. RECLAST [Suspect]
     Dosage: UNK UKN, UNK
     Route: 042
     Dates: start: 20100101
  8. RECLAST [Suspect]
     Dosage: UNK UKN, UNK
     Route: 042
     Dates: start: 20110101
  9. VITAMIN D [Concomitant]
     Dosage: 2 DF, QD
     Route: 048
  10. FUROSEMIDE [Concomitant]
     Dosage: 1 DF, QD
     Route: 048
  11. METHOTREXATE [Concomitant]
  12. RECLAST [Suspect]
     Dosage: UNK UKN, UNK
     Route: 042
     Dates: start: 20081201
  13. OMEPRAZOLE [Concomitant]

REACTIONS (2)
  - BONE PAIN [None]
  - DEATH [None]
